FAERS Safety Report 25913512 (Version 2)
Quarter: 2025Q4

REPORT INFORMATION
  Report Type: Spontaneous
  Country: CA (occurrence: CA)
  Receive Date: 20251013
  Receipt Date: 20251023
  Transmission Date: 20260118
  Serious: Yes (Death, Other)
  Sender: PFIZER
  Company Number: CA-PFIZER INC-202500200736

PATIENT
  Age: 70 Year
  Sex: Male

DRUGS (18)
  1. SOMAVERT [Suspect]
     Active Substance: PEGVISOMANT
     Indication: Acromegaly
     Dosage: 10 MG, 1X/DAY
     Route: 058
     Dates: start: 20200424, end: 202005
  2. SOMAVERT [Suspect]
     Active Substance: PEGVISOMANT
     Dosage: 10 MG, 1X/DAY
     Route: 058
     Dates: start: 202005, end: 202102
  3. SOMAVERT [Suspect]
     Active Substance: PEGVISOMANT
     Dosage: 15 MG, 1X/DAY
     Route: 058
     Dates: start: 202102
  4. ALLOPURINOL [Concomitant]
     Active Substance: ALLOPURINOL
     Dosage: 200 MG, 1X/DAY
  5. ATORVASTATIN [Concomitant]
     Active Substance: ATORVASTATIN
     Dosage: 20 MG, 1X/DAY
  6. CEFAZOLIN [Concomitant]
     Active Substance: CEFAZOLIN
     Indication: Sepsis
     Dosage: 200 MG, 3X/DAY
     Route: 042
     Dates: start: 202005
  7. CIPROFLOXACIN [Concomitant]
     Active Substance: CIPROFLOXACIN
     Dosage: 1 DF (DOSAGE UNKNOWN DISCONTINUED)
  8. ESLICARBAZEPINE [Concomitant]
     Active Substance: ESLICARBAZEPINE
     Dosage: 200 MG
     Dates: start: 2020
  9. LAMOTRIGINE [Concomitant]
     Active Substance: LAMOTRIGINE
     Dosage: 75 MG, 2X/DAY
     Dates: start: 2020
  10. LEVOTHYROXINE [Concomitant]
     Active Substance: LEVOTHYROXINE
     Dosage: 1 DF, 1X/DAY (0.15MG)
  11. METOPROLOL [Concomitant]
     Active Substance: METOPROLOL
     Dosage: 50 MG, 1X/DAY
  12. PANTOPRAZOLE [Concomitant]
     Active Substance: PANTOPRAZOLE
     Dosage: 20 MG, 1X/DAY
  13. PERINDOPRIL [Concomitant]
     Active Substance: PERINDOPRIL
     Dosage: 1 DF, 1X/DAY (0.625MG)
  14. PREDNISONE [Concomitant]
     Active Substance: PREDNISONE
     Dosage: 7 MG, 1X/DAY
  15. LANREOTIDE [Concomitant]
     Active Substance: LANREOTIDE
     Dosage: 120 MG, EVERY 21 DAY
     Route: 030
  16. TESTOSTERONE [Concomitant]
     Active Substance: TESTOSTERONE
     Dosage: 40 MG, 1X/DAY
  17. SULINDAC [Concomitant]
     Active Substance: SULINDAC
     Dosage: 150 MG, 2X/DAY
  18. ERGOCALCIFEROL [Concomitant]
     Active Substance: ERGOCALCIFEROL
     Dosage: 1000 IU, 1X/DAY

REACTIONS (1)
  - Death [Fatal]

NARRATIVE: CASE EVENT DATE: 20251002
